FAERS Safety Report 9099565 (Version 1)
Quarter: 2013Q1

REPORT INFORMATION
  Report Type: Spontaneous
  Country: DE (occurrence: DE)
  Receive Date: 20130214
  Receipt Date: 20130214
  Transmission Date: 20140127
  Serious: Yes (Other)
  Sender: FDA-Public Use
  Company Number: PHHY2013DE013467

PATIENT
  Age: 59 Year
  Sex: Female

DRUGS (12)
  1. CLOZAPINE [Suspect]
     Indication: SCHIZOPHRENIA, CATATONIC TYPE
     Dosage: 300 MG,
  2. CLOZAPINE [Interacting]
     Dosage: 350 MG,
  3. CLOZAPINE [Interacting]
     Dosage: 100 MG,
  4. PERAZINE [Interacting]
     Dosage: 350 MG,
  5. BENPERIDOL [Concomitant]
     Dosage: 5 MG,
  6. BENPERIDOL [Concomitant]
     Dosage: 2 MG,
  7. CHLORPROTHIXENE [Concomitant]
     Dosage: 100 MG,
  8. CHLORPROTHIXENE [Concomitant]
     Dosage: 250 MG,
  9. TRIMIPRAMINE [Concomitant]
     Dosage: 100 MG,
  10. LORAZEPAM [Concomitant]
     Dosage: 0.5 MG,
  11. PIRENZEPINE [Concomitant]
     Dosage: 150 MG,
  12. L-THYROXINE [Concomitant]
     Dosage: 0.05 MG,

REACTIONS (6)
  - Drug interaction [Unknown]
  - Antipsychotic drug level increased [Recovered/Resolved]
  - Agitation [Unknown]
  - Salivary hypersecretion [Unknown]
  - Confusional state [Recovered/Resolved]
  - Electroencephalogram abnormal [Unknown]
